FAERS Safety Report 5326296-X (Version None)
Quarter: 2007Q2

REPORT INFORMATION
  Report Type: 
  Country: None (occurrence: None)
  Receive Date: 20070514
  Receipt Date: 20070514
  Transmission Date: 20071010
  Serious: Yes (Other)
  Sender: FDA-Public Use
  Company Number: None

PATIENT
  Age: 4 Year
  Sex: Female
  Weight: 14.5151 kg

DRUGS (1)
  1. SULFAMETHOXAZOLE AND TRIMETHOPRIM [Suspect]
     Indication: URINARY TRACT INFECTION
     Dosage: 7 ML TWICE/DAY PO
     Route: 048
     Dates: start: 20070427, end: 20070506

REACTIONS (3)
  - ADVERSE DRUG REACTION [None]
  - PYREXIA [None]
  - RASH GENERALISED [None]
